FAERS Safety Report 17080903 (Version 1)
Quarter: 2019Q4

REPORT INFORMATION
  Report Type: Spontaneous
  Country: US (occurrence: US)
  Receive Date: 20191127
  Receipt Date: 20191127
  Transmission Date: 20200122
  Serious: No
  Sender: FDA-Public Use
  Company Number: US-ASTRAZENECA-2019SF54570

PATIENT
  Sex: Female

DRUGS (2)
  1. BYDUREON BCISE [Suspect]
     Active Substance: EXENATIDE
     Route: 058
  2. BYDUREON [Suspect]
     Active Substance: EXENATIDE
     Route: 065

REACTIONS (6)
  - Arthritis [Unknown]
  - Abdominal distension [Unknown]
  - Product dose omission [Unknown]
  - Intentional product misuse [Unknown]
  - Overweight [Unknown]
  - Device issue [Unknown]

NARRATIVE: CASE EVENT DATE: 20191028
